FAERS Safety Report 25651532 (Version 2)
Quarter: 2025Q3

REPORT INFORMATION
  Report Type: Spontaneous
  Country: US (occurrence: US)
  Receive Date: 20250806
  Receipt Date: 20250910
  Transmission Date: 20251021
  Serious: No
  Sender: DR REDDYS
  Company Number: US-DRL-USA-USA/2025/07/010191

PATIENT
  Age: 79 Year
  Sex: Male
  Weight: 86.18 kg

DRUGS (3)
  1. CLONIDINE [Suspect]
     Active Substance: CLONIDINE
     Indication: Hypotension
     Route: 062
  2. CLONIDINE [Suspect]
     Active Substance: CLONIDINE
     Indication: Depression
  3. CLONIDINE [Suspect]
     Active Substance: CLONIDINE
     Indication: Anxiety

REACTIONS (6)
  - Application site pruritus [Not Recovered/Not Resolved]
  - Application site rash [Not Recovered/Not Resolved]
  - Discomfort [Not Recovered/Not Resolved]
  - Dehydration [Not Recovered/Not Resolved]
  - Condition aggravated [Not Recovered/Not Resolved]
  - Product use in unapproved indication [Unknown]
